FAERS Safety Report 5445939-3 (Version None)
Quarter: 2007Q3

REPORT INFORMATION
  Report Type: 
  Country: None (occurrence: None)
  Receive Date: 20070904
  Receipt Date: 20070404
  Transmission Date: 20080115
  Serious: Yes (Hospitalization)
  Sender: FDA-Public Use
  Company Number: ADR0732007

PATIENT
  Age: 55 Year
  Sex: Female

DRUGS (4)
  1. CO METFORMIN TABLETS (LOT NO./EXPIRY DATE UNKNOWN) [Suspect]
     Indication: DIABETES MELLITUS
     Dosage: ORAL
     Route: 048
     Dates: start: 20061010, end: 20070616
  2. OMEPRAZOLE [Concomitant]
  3. GEN-SIMVASTATIN [Concomitant]
  4. SYNTHROID [Concomitant]

REACTIONS (4)
  - ABDOMINAL PAIN [None]
  - INFLUENZA LIKE ILLNESS [None]
  - PAIN [None]
  - RESPIRATORY TRACT CONGESTION [None]
